FAERS Safety Report 11428066 (Version 2)
Quarter: 2015Q4

REPORT INFORMATION
  Report Type: Spontaneous
  Country: GB (occurrence: GB)
  Receive Date: 20150828
  Receipt Date: 20151001
  Transmission Date: 20160304
  Serious: Yes (Hospitalization)
  Sender: FDA-Public Use
  Company Number: GB-ACTAVISPR-2015-17836

PATIENT
  Sex: Male

DRUGS (5)
  1. PREDNISOLONE. [Suspect]
     Active Substance: PREDNISOLONE
     Dosage: 2.5 UNK, UNK
     Route: 065
     Dates: start: 2005
  2. PREDNISOLONE. [Suspect]
     Active Substance: PREDNISOLONE
     Indication: PRODUCT USED FOR UNKNOWN INDICATION
     Dosage: 1 MG, UNKNOWN
     Route: 065
  3. WARFARIN [Concomitant]
     Active Substance: WARFARIN
     Indication: PRODUCT USED FOR UNKNOWN INDICATION
     Dosage: 5 MG, UNKNOWN
     Route: 065
     Dates: start: 2000
  4. PREDNISOLONE. [Suspect]
     Active Substance: PREDNISOLONE
     Dosage: 20 UNK, UNK
     Route: 065
     Dates: start: 2000
  5. PREDNISOLONE. [Suspect]
     Active Substance: PREDNISOLONE
     Dosage: 5 MG, UNKNOWN
     Route: 065

REACTIONS (10)
  - Drug titration error [Unknown]
  - Arthralgia [Unknown]
  - Malaise [Unknown]
  - Thrombosis [Recovered/Resolved]
  - Walking disability [Recovered/Resolved]
  - Impaired healing [Unknown]
  - Immobile [Recovered/Resolved]
  - Myalgia [Unknown]
  - Swelling [Unknown]
  - Tremor [Unknown]

NARRATIVE: CASE EVENT DATE: 2000
